FAERS Safety Report 6928014-8 (Version None)
Quarter: 2010Q3

REPORT INFORMATION
  Report Type: 
  Country: None (occurrence: None)
  Receive Date: 20100816
  Receipt Date: 20100816
  Transmission Date: 20110219
  Serious: Yes (Other)
  Sender: FDA-Public Use
  Company Number: None

PATIENT
  Age: 35 Year
  Sex: Female
  Weight: 77.1115 kg

DRUGS (5)
  1. SAVELLA [Suspect]
     Indication: PAIN
     Dosage: 12.5MG 1X DAY PO
     Route: 048
     Dates: start: 20100401, end: 20100601
  2. PRIMALEV [Concomitant]
  3. WELLBUTRIN XL [Concomitant]
  4. CLARINEX-D 12HR [Concomitant]
  5. LUNESTA [Concomitant]

REACTIONS (1)
  - VISION BLURRED [None]
